FAERS Safety Report 6550535-0 (Version None)
Quarter: 2010Q1

REPORT INFORMATION
  Report Type: 
  Country: None (occurrence: None)
  Receive Date: 20100125
  Receipt Date: 20100122
  Transmission Date: 20100710
  Serious: Yes (Hospitalization, Other)
  Sender: FDA-Public Use
  Company Number: B0628123A

PATIENT
  Age: 50 Year
  Sex: Female
  Weight: 67 kg

DRUGS (1)
  1. LAMICTIN [Suspect]
     Indication: EPILEPSY
     Dosage: 200MG PER DAY
     Route: 065

REACTIONS (3)
  - ARTHRITIS [None]
  - LEUKOCYTOCLASTIC VASCULITIS [None]
  - MYOSITIS [None]
